FAERS Safety Report 25597706 (Version 1)
Quarter: 2025Q3

REPORT INFORMATION
  Report Type: Report from Study
  Country: MX (occurrence: MX)
  Receive Date: 20250723
  Receipt Date: 20250723
  Transmission Date: 20251021
  Serious: Yes (Death, Hospitalization, Other)
  Sender: AMGEN
  Company Number: MX-AMGEN-MEXSL2025060720

PATIENT
  Age: 67 Year
  Sex: Male

DRUGS (1)
  1. VECTIBIX [Suspect]
     Active Substance: PANITUMUMAB
     Indication: Colon cancer
     Dosage: 200 MILLIGRAM, Q3WK
     Route: 065
     Dates: start: 20231118

REACTIONS (4)
  - Colon cancer [Fatal]
  - Urticaria [Unknown]
  - Skin fissures [Unknown]
  - Off label use [Unknown]

NARRATIVE: CASE EVENT DATE: 20231118
